FAERS Safety Report 9202259 (Version 2)
Quarter: 2013Q4

REPORT INFORMATION
  Report Type: Spontaneous
  Country: US (occurrence: US)
  Receive Date: 20130401
  Receipt Date: 20131202
  Transmission Date: 20140711
  Serious: Yes (Other)
  Sender: FDA-Public Use
  Company Number: US-BAYER-2013-038472

PATIENT
  Age: 33 Year
  Sex: Female

DRUGS (10)
  1. YAZ [Suspect]
  2. YASMIN [Suspect]
  3. OCELLA [Suspect]
  4. MOTRIN [Concomitant]
     Indication: PAIN
  5. TORADOL [Concomitant]
     Indication: ABDOMINAL PAIN
  6. BENADRYL [Concomitant]
     Indication: HEADACHE
  7. BENADRYL [Concomitant]
     Indication: PAIN
  8. REGLAN [Concomitant]
     Indication: HEADACHE
  9. REGLAN [Concomitant]
     Indication: PAIN
  10. BACTRIM [Concomitant]

REACTIONS (5)
  - Cholecystitis chronic [None]
  - Gallbladder injury [None]
  - Pain [None]
  - Injury [None]
  - Pain [None]
